FAERS Safety Report 9459991 (Version 2)
Quarter: 2013Q3

REPORT INFORMATION
  Report Type: Spontaneous
  Country: FR (occurrence: FR)
  Receive Date: 20130815
  Receipt Date: 20130827
  Transmission Date: 20140515
  Serious: No
  Sender: FDA-Public Use
  Company Number: FR-JNJFOC-20130804801

PATIENT
  Sex: Male

DRUGS (1)
  1. DUROGESIC [Suspect]
     Indication: PAIN
     Dosage: HALF A PATCH
     Route: 062
     Dates: start: 20130808

REACTIONS (3)
  - Drug prescribing error [Unknown]
  - Off label use [Unknown]
  - Wrong technique in drug usage process [Unknown]
